FAERS Safety Report 26077615 (Version 1)
Quarter: 2025Q4

REPORT INFORMATION
  Report Type: Spontaneous
  Country: US (occurrence: US)
  Receive Date: 20251121
  Receipt Date: 20251121
  Transmission Date: 20260118
  Serious: No
  Sender: NOVARTIS
  Company Number: US-002147023-NVSC2025US179966

PATIENT
  Sex: Female

DRUGS (1)
  1. LEQVIO [Suspect]
     Active Substance: INCLISIRAN SODIUM
     Indication: Arteriosclerosis
     Dosage: 284/1.5 MILLIGRAM PER MILLILITRE OTHER (MONTH 1, MONTH 3, EVERY 6 MONTHS AFTER)
     Route: 058

REACTIONS (1)
  - Arthralgia [Unknown]
